FAERS Safety Report 12772950 (Version 1)
Quarter: 2016Q3

REPORT INFORMATION
  Report Type: Spontaneous
  Country: GB (occurrence: GB)
  Receive Date: 20160922
  Receipt Date: 20160922
  Transmission Date: 20161109
  Serious: Yes (Hospitalization, Other)
  Sender: FDA-Public Use
  Company Number: GB-NOVOPROD-510475

PATIENT

DRUGS (1)
  1. TRESIBA [Suspect]
     Active Substance: INSULIN DEGLUDEC
     Indication: PRODUCT USED FOR UNKNOWN INDICATION
     Dosage: ONCE A DAY
     Route: 065

REACTIONS (5)
  - Blood glucose decreased [Unknown]
  - Memory impairment [Unknown]
  - Confusional state [Unknown]
  - Seizure [Unknown]
  - Fall [Unknown]
